FAERS Safety Report 7023184-8 (Version None)
Quarter: 2010Q3

REPORT INFORMATION
  Report Type: 
  Country: None (occurrence: None)
  Receive Date: 20100930
  Receipt Date: 20100920
  Transmission Date: 20110219
  Serious: Yes (Hospitalization, Other)
  Sender: FDA-Public Use
  Company Number: US-ABBOTT-10P-163-0667911-00

PATIENT
  Sex: Female
  Weight: 44.492 kg

DRUGS (3)
  1. HUMIRA [Suspect]
     Indication: CROHN'S DISEASE
     Dosage: LOT AND EXPIRATION WERE UNKNOWN. LAST INJECTION 1 WK PRIOR TO 11 AUG 2010 HOSPITALIZATION.
     Route: 058
     Dates: start: 20100401, end: 20100801
  2. PENTASA [Suspect]
     Indication: CROHN'S DISEASE
  3. AZOTHIAPRINE [Concomitant]
     Indication: CROHN'S DISEASE

REACTIONS (9)
  - ABDOMINAL PAIN [None]
  - APPENDIX DISORDER [None]
  - ASTHENIA [None]
  - DEHYDRATION [None]
  - GASTROINTESTINAL DISORDER [None]
  - PULMONARY OEDEMA [None]
  - PYREXIA [None]
  - SMALL INTESTINAL OBSTRUCTION [None]
  - VOMITING [None]
